FAERS Safety Report 12931195 (Version 1)
Quarter: 2016Q4

REPORT INFORMATION
  Report Type: Spontaneous
  Country: US (occurrence: US)
  Receive Date: 20161110
  Receipt Date: 20161110
  Transmission Date: 20170207
  Serious: No
  Sender: FDA-Public Use
  Company Number: US-JAZZ-2016-US-018029

PATIENT
  Sex: Male

DRUGS (26)
  1. HUMALOG [Concomitant]
     Active Substance: INSULIN LISPRO
  2. MIRAPEX [Concomitant]
     Active Substance: PRAMIPEXOLE DIHYDROCHLORIDE
  3. NOVOLOG [Concomitant]
     Active Substance: INSULIN ASPART
  4. XYREM [Suspect]
     Active Substance: SODIUM OXYBATE
     Indication: NARCOLEPSY
     Dosage: 2.25 G, BID
     Route: 048
     Dates: start: 201502, end: 201503
  5. VITAMIN B12 [Concomitant]
     Active Substance: CYANOCOBALAMIN
  6. SPIRONOLACTONE. [Concomitant]
     Active Substance: SPIRONOLACTONE
  7. HYDROCHLOROTHIAZIDE. [Concomitant]
     Active Substance: HYDROCHLOROTHIAZIDE
  8. POTASSIUM CL [Concomitant]
     Active Substance: POTASSIUM CHLORIDE
  9. HUMULIN R [Concomitant]
     Active Substance: INSULIN HUMAN
  10. ZAROXOLYN [Concomitant]
     Active Substance: METOLAZONE
  11. CRESTOR [Concomitant]
     Active Substance: ROSUVASTATIN CALCIUM
  12. ADVIL [Concomitant]
     Active Substance: IBUPROFEN
  13. FUROSEMIDE. [Concomitant]
     Active Substance: FUROSEMIDE
  14. NEURONTIN [Concomitant]
     Active Substance: GABAPENTIN
  15. PRILOSEC [Concomitant]
     Active Substance: OMEPRAZOLE MAGNESIUM
  16. ASPIRIN. [Concomitant]
     Active Substance: ASPIRIN
  17. CAVERJECT [Concomitant]
     Active Substance: ALPROSTADIL
  18. VALTREX [Concomitant]
     Active Substance: VALACYCLOVIR HYDROCHLORIDE
  19. PROVIGIL [Concomitant]
     Active Substance: MODAFINIL
  20. ATENOLOL. [Concomitant]
     Active Substance: ATENOLOL
  21. XYREM [Suspect]
     Active Substance: SODIUM OXYBATE
     Indication: CATAPLEXY
     Dosage: 3 G, BID
     Route: 048
     Dates: start: 201503
  22. CLONAZEPAM. [Concomitant]
     Active Substance: CLONAZEPAM
  23. GABAPENTIN. [Concomitant]
     Active Substance: GABAPENTIN
  24. TESTOSTERONE CYPIONATE. [Concomitant]
     Active Substance: TESTOSTERONE CYPIONATE
  25. NITROGLYCERIN. [Concomitant]
     Active Substance: NITROGLYCERIN
  26. NYSTATIN. [Concomitant]
     Active Substance: NYSTATIN

REACTIONS (5)
  - Migraine [Unknown]
  - Blood cholesterol increased [Not Recovered/Not Resolved]
  - Visual impairment [Not Recovered/Not Resolved]
  - Herpes zoster [Unknown]
  - Blood glucose decreased [Unknown]
